FAERS Safety Report 5327482-5 (Version None)
Quarter: 2007Q2

REPORT INFORMATION
  Report Type: 
  Country: None (occurrence: None)
  Receive Date: 20070517
  Receipt Date: 20070131
  Transmission Date: 20071010
  Serious: Yes (Hospitalization)
  Sender: FDA-Public Use
  Company Number: US-JNJFOC-20070103474

PATIENT
  Age: 18 Year
  Sex: Female

DRUGS (4)
  1. TRAMADOL HCL [Suspect]
     Indication: SUICIDE ATTEMPT
     Route: 048
  2. TRAMADOL HCL [Suspect]
     Indication: INTENTIONAL OVERDOSE
     Route: 048
  3. ANTIHISTAMINES [Suspect]
     Indication: SUICIDE ATTEMPT
     Route: 048
  4. ANTIHISTAMINES [Suspect]
     Indication: INTENTIONAL OVERDOSE
     Route: 048

REACTIONS (6)
  - CONVULSION [None]
  - DRUG EXPOSURE DURING PREGNANCY [None]
  - EXTENSOR PLANTAR RESPONSE [None]
  - SUBSTANCE ABUSE [None]
  - SUICIDE ATTEMPT [None]
  - TACHYCARDIA [None]
